FAERS Safety Report 8492797-9 (Version None)
Quarter: 2012Q2

REPORT INFORMATION
  Report Type: 
  Country: None (occurrence: None)
  Receive Date: 20120629
  Receipt Date: 20120629
  Transmission Date: 20120825
  Serious: No
  Sender: FDA-Public Use
  Company Number: None

PATIENT
  Age: 68 Year
  Sex: Female
  Weight: 72.3 kg

DRUGS (2)
  1. XGEVA [Suspect]
     Indication: METASTASES TO BONE
     Dosage: 120 MG Q4 WEEKS SUBCUTANEOUS INJ
     Route: 058
     Dates: start: 20120207, end: 20120207
  2. XGEVA [Suspect]
     Indication: METASTASES TO BONE
     Dosage: 120 MG Q4 WEEKS SUBCUTANEOUS INJ
     Route: 058
     Dates: start: 20120306, end: 20120306

REACTIONS (3)
  - HYPOAESTHESIA [None]
  - RADIATION INJURY [None]
  - OSTEONECROSIS OF JAW [None]
